FAERS Safety Report 6905856-6 (Version None)
Quarter: 2010Q3

REPORT INFORMATION
  Report Type: 
  Country: None (occurrence: None)
  Receive Date: 20100804
  Receipt Date: 20100721
  Transmission Date: 20110219
  Serious: Yes (Hospitalization, Other)
  Sender: FDA-Public Use
  Company Number: US-ELI_LILLY_AND_COMPANY-US201007006096

PATIENT
  Age: 68 Year

DRUGS (2)
  1. EFFIENT [Suspect]
     Indication: ACUTE MYOCARDIAL INFARCTION
     Dosage: 10 MG, UNKNOWN
     Dates: start: 20100701, end: 20100701
  2. PLAVIX [Concomitant]

REACTIONS (2)
  - LIVER DISORDER [None]
  - PULMONARY HAEMORRHAGE [None]
